FAERS Safety Report 19697778 (Version 2)
Quarter: 2025Q2

REPORT INFORMATION
  Report Type: Spontaneous
  Country: DE (occurrence: DE)
  Receive Date: 20210812
  Receipt Date: 20250602
  Transmission Date: 20250717
  Serious: Yes (Other)
  Sender: Kenvue
  Company Number: DE-PROCTER+GAMBLE-PH21005358

PATIENT

DRUGS (3)
  1. IBUPROFEN [Suspect]
     Active Substance: IBUPROFEN
     Indication: Product used for unknown indication
     Dosage: 20 TABLET, 1 ONLY
     Route: 048
     Dates: start: 20210630, end: 20210630
  2. ACETAMINOPHEN\DEXTROMETHORPHAN HYDROBROMIDE\DOXYLAMINE\EPHEDRINE SULFA [Suspect]
     Active Substance: ACETAMINOPHEN\DEXTROMETHORPHAN HYDROBROMIDE\DOXYLAMINE\EPHEDRINE SULFATE
     Indication: Product used for unknown indication
     Route: 048
     Dates: start: 20210630, end: 20210630
  3. VITAMIN B COMPLEX [Suspect]
     Active Substance: CYANOCOBALAMIN\DEXPANTHENOL\NIACINAMIDE\PYRIDOXINE HYDROCHLORIDE\RIBOFLAVIN 5^-PHOSPHATE SODIUM\THIA
     Indication: Product used for unknown indication
     Dosage: 30 TABLETS, 1 ONLY
     Route: 048
     Dates: start: 20210630, end: 20210630

REACTIONS (3)
  - Suicidal behaviour [Unknown]
  - Intentional product use issue [Unknown]
  - Exposure via ingestion [Unknown]

NARRATIVE: CASE EVENT DATE: 20210630
